FAERS Safety Report 20001047 (Version 1)
Quarter: 2021Q4

REPORT INFORMATION
  Report Type: Spontaneous
  Country: US (occurrence: US)
  Receive Date: 20211027
  Receipt Date: 20211027
  Transmission Date: 20220303
  Serious: Yes (Death)
  Sender: FDA-Public Use
  Company Number: None

PATIENT
  Age: 83 Year
  Sex: Female

DRUGS (10)
  1. BOTOX [Suspect]
     Active Substance: ONABOTULINUMTOXINA
     Indication: Facial spasm
     Dosage: ?          OTHER FREQUENCY:EVERY 12 WEEKS;
     Route: 030
     Dates: start: 20210204
  2. CEFUROXIME [Concomitant]
     Active Substance: CEFUROXIME
  3. LORAZEPAM [Concomitant]
     Active Substance: LORAZEPAM
  4. PANTOPRAZOLE [Concomitant]
     Active Substance: PANTOPRAZOLE
  5. ONDANSETRON [Concomitant]
     Active Substance: ONDANSETRON
  6. MORPHINE SULFATE [Concomitant]
     Active Substance: MORPHINE SULFATE
  7. MIRTAZAPINE [Concomitant]
     Active Substance: MIRTAZAPINE
  8. CEFDINIR [Concomitant]
     Active Substance: CEFDINIR
  9. DONEPEZIL [Concomitant]
     Active Substance: DONEPEZIL
  10. Pot Chloride ER [Concomitant]

REACTIONS (1)
  - Death [None]
